FAERS Safety Report 6511656-1 (Version None)
Quarter: 2009Q4

REPORT INFORMATION
  Report Type: 
  Country: None (occurrence: None)
  Receive Date: 20091222
  Receipt Date: 20090506
  Transmission Date: 20100525
  Serious: No
  Sender: FDA-Public Use
  Company Number: US-ASTRAZENECA-2009UW11541

PATIENT
  Age: 68 Year
  Sex: Female
  Weight: 81.6 kg

DRUGS (7)
  1. CRESTOR [Suspect]
     Indication: BLOOD CHOLESTEROL
     Route: 048
     Dates: start: 20090407, end: 20090505
  2. THYROID COMPOUND [Concomitant]
  3. HYZAAR [Concomitant]
  4. ASPIRIN [Concomitant]
  5. BYETTA [Concomitant]
  6. FISH OIL [Concomitant]
  7. LINSEED OIL [Concomitant]

REACTIONS (4)
  - FATIGUE [None]
  - NAUSEA [None]
  - RETCHING [None]
  - VOMITING [None]
